FAERS Safety Report 7514585-X (Version None)
Quarter: 2011Q2

REPORT INFORMATION
  Report Type: 
  Country: None (occurrence: None)
  Receive Date: 20110520
  Receipt Date: 20110512
  Transmission Date: 20111010
  Serious: Yes (Hospitalization)
  Sender: FDA-Public Use
  Company Number: 2011SP001462

PATIENT
  Age: 45 Year
  Sex: Female
  Weight: 73.5 kg

DRUGS (11)
  1. DITROPAN [Concomitant]
  2. LYRICA [Concomitant]
  3. IMURAN [Concomitant]
  4. LUNESTA [Suspect]
     Indication: INSOMNIA
     Dosage: 3 MG, PRN, 90 MG, 1X, ORAL
     Route: 048
     Dates: start: 20110501, end: 20110501
  5. LUNESTA [Suspect]
     Indication: INSOMNIA
     Dosage: 3 MG, PRN, 90 MG, 1X, ORAL
     Route: 048
     Dates: start: 20070101
  6. PREDNISONE [Concomitant]
  7. OXYCONTIN [Concomitant]
  8. METHOTREXATE [Concomitant]
  9. ESTROGENS [Concomitant]
  10. CYMBALTA [Concomitant]
  11. TOPROL-XL [Concomitant]

REACTIONS (5)
  - DRUG SCREEN POSITIVE [None]
  - SUICIDAL BEHAVIOUR [None]
  - REFUSAL OF TREATMENT BY PATIENT [None]
  - INTENTIONAL OVERDOSE [None]
  - DEPRESSION [None]
